FAERS Safety Report 5689494-1 (Version None)
Quarter: 2008Q1

REPORT INFORMATION
  Report Type: 
  Country: None (occurrence: None)
  Receive Date: 20080331
  Receipt Date: 20080320
  Transmission Date: 20080703
  Serious: Yes (Other)
  Sender: FDA-Public Use
  Company Number: US-PFIZER INC-2008025602

PATIENT
  Sex: Male
  Weight: 13 kg

DRUGS (3)
  1. SOLU-MEDROL [Suspect]
     Indication: CHRONIC INFLAMMATORY DEMYELINATING POLYRADICULONEUROPATHY
     Route: 042
  2. IMMUNE GLOBULIN (HUMAN) [Concomitant]
     Route: 042
  3. ZANTAC [Concomitant]

REACTIONS (1)
  - CD4 LYMPHOCYTES DECREASED [None]
